FAERS Safety Report 10094399 (Version 2)
Quarter: 2014Q2

REPORT INFORMATION
  Report Type: Spontaneous
  Country: GB (occurrence: GB)
  Receive Date: 20140422
  Receipt Date: 20140428
  Transmission Date: 20141212
  Serious: Yes (Life-Threatening, Hospitalization, Other)
  Sender: FDA-Public Use
  Company Number: GB-JNJFOC-20140408528

PATIENT
  Age: 48 Year
  Sex: Male

DRUGS (7)
  1. HALOPERIDOL [Suspect]
     Indication: AGITATION
     Route: 065
  2. HALOPERIDOL [Suspect]
     Indication: AGITATION
     Dosage: 5 TO 10 MG UP TO 30 MG AS REQUIRED
     Route: 065
     Dates: start: 20131220
  3. CLOZARIL [Suspect]
     Indication: SCHIZOAFFECTIVE DISORDER
     Route: 048
  4. CLOZARIL [Suspect]
     Indication: SCHIZOAFFECTIVE DISORDER
     Dosage: 200.0 UNSPECIFIED UNITS
     Route: 048
     Dates: start: 20010701, end: 20140103
  5. OLANZAPINE [Suspect]
     Indication: PRODUCT USED FOR UNKNOWN INDICATION
     Route: 065
     Dates: start: 20140106, end: 20140106
  6. LITHIUM [Concomitant]
     Route: 065
  7. LORAZEPAM [Concomitant]
     Route: 065

REACTIONS (5)
  - Neuroleptic malignant syndrome [Recovered/Resolved]
  - Blood creatine phosphokinase increased [Unknown]
  - Neutrophil count increased [Unknown]
  - White blood cell count increased [Unknown]
  - Dysphagia [Unknown]
